FAERS Safety Report 8561923 (Version 11)
Quarter: 2013Q1

REPORT INFORMATION
  Report Type: Spontaneous
  Country: US (occurrence: US)
  Receive Date: 20120515
  Receipt Date: 20130307
  Transmission Date: 20140127
  Serious: Yes (Life-Threatening, Hospitalization, Congenital Anomaly, Other)
  Sender: FDA-Public Use
  Company Number: US-PFIZER INC-2012014348

PATIENT
  Sex: Male
  Weight: 3 kg

DRUGS (12)
  1. ZOLOFT [Suspect]
     Dosage: 100MG HALF DOSE (1/2) DAILY
     Route: 064
     Dates: start: 20001212
  2. ZOLOFT [Suspect]
     Dosage: ONE AND HALF DOSE DAILY
     Route: 064
     Dates: start: 20010102
  3. ZOLOFT [Suspect]
     Dosage: UNK
     Route: 064
     Dates: start: 2001, end: 2002
  4. ZOLOFT [Suspect]
     Dosage: HALF DOSE OF 100 MG AND THEN INCREASED TO ONE AND HALF DOSE DAILY
     Route: 064
     Dates: start: 20020306
  5. PRENATAL VITAMINS [Concomitant]
     Dosage: UNK
     Route: 064
  6. CEFLEX [Concomitant]
     Dosage: UNK
     Route: 064
  7. PROMETHAZINE [Concomitant]
     Dosage: UNK
     Route: 064
  8. BONTRIL [Concomitant]
     Dosage: UNK
     Route: 064
  9. AMOXICILLIN [Concomitant]
     Dosage: UNK
     Route: 064
  10. TYLENOL [Concomitant]
     Indication: NASOPHARYNGITIS
     Dosage: 500 MG, UNK
     Route: 064
     Dates: start: 20021214
  11. FERROUS SULFATE [Concomitant]
     Dosage: 325 MG, 3X/DAY
     Route: 064
     Dates: start: 20021214
  12. COLACE DOCUSATE [Concomitant]
     Dosage: 100 MG, 3X/DAY
     Route: 064
     Dates: start: 20021214

REACTIONS (16)
  - Maternal exposure timing unspecified [Unknown]
  - Heart disease congenital [Unknown]
  - Congenital anomaly [Unknown]
  - Fallot^s tetralogy [Unknown]
  - Pulmonary artery atresia [Unknown]
  - Right ventricle outflow tract obstruction [Unknown]
  - Neonatal respiratory distress syndrome [Recovered/Resolved]
  - Atrial septal defect [Unknown]
  - Pneumothorax [Recovered/Resolved]
  - Pneumothorax [Recovered/Resolved]
  - Sepsis neonatal [Recovered/Resolved]
  - Ventricular septal defect [Unknown]
  - Pulmonary valve stenosis [Unknown]
  - Pneumopericardium [Unknown]
  - Hypertension neonatal [Unknown]
  - Premature baby [Unknown]
